FAERS Safety Report 6678742-7 (Version None)
Quarter: 2010Q2

REPORT INFORMATION
  Report Type: 
  Country: None (occurrence: None)
  Receive Date: 20100413
  Receipt Date: 20100401
  Transmission Date: 20101027
  Serious: Yes (Other)
  Sender: FDA-Public Use
  Company Number: JP-PFIZER INC-2010040169

PATIENT

DRUGS (2)
  1. CLINDAMYCIN PHOSPHATE [Suspect]
     Indication: PNEUMONIA
     Dosage: 150 MG, 4X/DAY
     Route: 042
     Dates: start: 20100324
  2. ZOSYN [Concomitant]
     Indication: PNEUMONIA
     Dosage: UNK
     Route: 042

REACTIONS (1)
  - ARRHYTHMIA [None]
